FAERS Safety Report 5069195-3 (Version None)
Quarter: 2006Q3

REPORT INFORMATION
  Report Type: 
  Country: None (occurrence: None)
  Receive Date: 20060803
  Receipt Date: 20060621
  Transmission Date: 20061208
  Serious: Yes (Other)
  Sender: FDA-Public Use
  Company Number: US-JNJFOC-20060604792

PATIENT
  Sex: Female
  Weight: 31.3 kg

DRUGS (2)
  1. REMICADE [Suspect]
     Indication: CROHN'S DISEASE
     Route: 042
  2. IMURAN [Concomitant]
     Indication: CROHN'S DISEASE

REACTIONS (4)
  - ILEAL STENOSIS [None]
  - PHARYNGOLARYNGEAL PAIN [None]
  - RASH [None]
  - UPPER RESPIRATORY TRACT INFECTION [None]
